FAERS Safety Report 5231425-2 (Version None)
Quarter: 2007Q1

REPORT INFORMATION
  Report Type: 
  Country: None (occurrence: None)
  Receive Date: 20070206
  Receipt Date: 20070123
  Transmission Date: 20070707
  Serious: Yes (Hospitalization, Other)
  Sender: FDA-Public Use
  Company Number: US-SHR-US-2006-013333

PATIENT
  Age: 57 Year
  Sex: Male

DRUGS (1)
  1. BETASERON [Suspect]
     Indication: SECONDARY PROGRESSIVE MULTIPLE SCLEROSIS
     Dosage: 8 MIU, EVERY 2D
     Route: 058
     Dates: start: 20041206

REACTIONS (5)
  - BEDRIDDEN [None]
  - BLOOD COUNT ABNORMAL [None]
  - DECUBITUS ULCER [None]
  - DEVICE RELATED INFECTION [None]
  - MUSCLE SPASTICITY [None]
